FAERS Safety Report 7338440-3 (Version None)
Quarter: 2011Q1

REPORT INFORMATION
  Report Type: 
  Country: None (occurrence: None)
  Receive Date: 20110308
  Receipt Date: 20110303
  Transmission Date: 20110831
  Serious: Yes (Life-Threatening, Hospitalization, Disabling)
  Sender: FDA-Public Use
  Company Number: GB-ABBOTT-11P-167-0708976-00

PATIENT
  Age: 54 Year
  Sex: Female

DRUGS (16)
  1. CARBOCISTEINE [Concomitant]
     Indication: PRODUCT USED FOR UNKNOWN INDICATION
  2. SYMBICORT [Concomitant]
     Indication: PRODUCT USED FOR UNKNOWN INDICATION
  3. CITALOPRAM [Concomitant]
     Indication: PRODUCT USED FOR UNKNOWN INDICATION
  4. HUMIRA [Suspect]
     Indication: NECROTISING SCLERITIS
     Route: 058
     Dates: start: 20070130, end: 20110130
  5. MINIMS DEXAMETHASONE [Concomitant]
     Indication: PRODUCT USED FOR UNKNOWN INDICATION
  6. CO-AMILOFRUSE [Concomitant]
     Indication: PRODUCT USED FOR UNKNOWN INDICATION
  7. PREDNISOLONE [Concomitant]
     Indication: PRODUCT USED FOR UNKNOWN INDICATION
  8. MYCOPHENOLATE MOFETIL [Concomitant]
     Indication: PRODUCT USED FOR UNKNOWN INDICATION
  9. CALCICHEW D3 [Concomitant]
     Indication: PRODUCT USED FOR UNKNOWN INDICATION
  10. VITAMIN B COMPLEX CAP [Concomitant]
     Indication: PRODUCT USED FOR UNKNOWN INDICATION
  11. DIAZEPAM [Concomitant]
     Indication: PRODUCT USED FOR UNKNOWN INDICATION
  12. SANDO K [Concomitant]
     Indication: PRODUCT USED FOR UNKNOWN INDICATION
  13. OMEPRAZOLE [Concomitant]
     Indication: PRODUCT USED FOR UNKNOWN INDICATION
  14. SALBUTAMOL [Concomitant]
     Indication: PRODUCT USED FOR UNKNOWN INDICATION
  15. THIAMINE [Concomitant]
     Indication: PRODUCT USED FOR UNKNOWN INDICATION
  16. SPIRONOLACTONE [Concomitant]
     Indication: PRODUCT USED FOR UNKNOWN INDICATION

REACTIONS (1)
  - HAEMORRHAGIC STROKE [None]
